FAERS Safety Report 10236284 (Version 2)
Quarter: 2014Q2

REPORT INFORMATION
  Report Type: Report from Study
  Country: US (occurrence: US)
  Receive Date: 20140613
  Receipt Date: 20140630
  Transmission Date: 20141212
  Serious: Yes (Hospitalization, Other)
  Sender: FDA-Public Use
  Company Number: US-GLAXOSMITHKLINE-A1076787A

PATIENT
  Age: 21 Year
  Sex: Female
  Weight: 59.1 kg

DRUGS (5)
  1. BENLYSTA [Suspect]
     Indication: SYSTEMIC LUPUS ERYTHEMATOSUS
     Dosage: 10MGK UNKNOWN
     Route: 042
     Dates: start: 20130513, end: 20130926
  2. PREDNISONE [Concomitant]
     Indication: SYSTEMIC LUPUS ERYTHEMATOSUS
     Dosage: 5MG UNKNOWN
     Route: 048
  3. AZATHIOPRINE [Concomitant]
     Indication: SYSTEMIC LUPUS ERYTHEMATOSUS
     Dosage: 150MG UNKNOWN
     Dates: start: 201102, end: 20131021
  4. PLAQUENIL [Concomitant]
  5. FOLIC ACID [Concomitant]
     Dates: start: 20131106

REACTIONS (5)
  - Foetal growth restriction [Unknown]
  - Pre-eclampsia [Unknown]
  - Proteinuria [Unknown]
  - Live birth [Unknown]
  - Exposure during pregnancy [Unknown]
